FAERS Safety Report 26182349 (Version 1)
Quarter: 2025Q4

REPORT INFORMATION
  Report Type: Spontaneous
  Country: US (occurrence: US)
  Receive Date: 20251221
  Receipt Date: 20251221
  Transmission Date: 20260117
  Serious: No
  Sender: SANOFI AVENTIS
  Company Number: US-SA-2025SA377538

PATIENT
  Sex: Female

DRUGS (2)
  1. DUPIXENT [Suspect]
     Active Substance: DUPILUMAB
     Indication: Dermatitis atopic
     Route: 065
  2. NEMOLIZUMAB [Suspect]
     Active Substance: NEMOLIZUMAB

REACTIONS (4)
  - Paraesthesia [Unknown]
  - Eye disorder [Unknown]
  - Headache [Unknown]
  - Vision blurred [Unknown]
